FAERS Safety Report 14393440 (Version 1)
Quarter: 2018Q1

REPORT INFORMATION
  Report Type: Spontaneous
  Country: JP (occurrence: JP)
  Receive Date: 20180116
  Receipt Date: 20180116
  Transmission Date: 20180509
  Serious: Yes (Death, Hospitalization)
  Sender: FDA-Public Use
  Company Number: JP-ASTRAZENECA-2018SE06170

PATIENT
  Age: 85 Year
  Sex: Male

DRUGS (4)
  1. PLAVIX [Suspect]
     Active Substance: CLOPIDOGREL BISULFATE
     Indication: CEREBRAL INFARCTION
     Route: 048
     Dates: start: 20161022, end: 20161026
  2. SENNARIDE [Suspect]
     Active Substance: SENNOSIDES A AND B
     Indication: CEREBRAL INFARCTION
     Route: 065
     Dates: start: 20161022, end: 20161026
  3. GLUCOSE [Suspect]
     Active Substance: DEXTROSE
     Route: 042
  4. NEXIUM [Suspect]
     Active Substance: ESOMEPRAZOLE MAGNESIUM
     Indication: PROPHYLAXIS AGAINST GASTROINTESTINAL ULCER
     Route: 048
     Dates: start: 20161022, end: 20161026

REACTIONS (2)
  - Urinary tract infection [Recovering/Resolving]
  - Toxic epidermal necrolysis [Fatal]
